FAERS Safety Report 18235299 (Version 1)
Quarter: 2020Q3

REPORT INFORMATION
  Report Type: Spontaneous
  Country: US (occurrence: US)
  Receive Date: 20200905
  Receipt Date: 20200905
  Transmission Date: 20201103
  Serious: No
  Sender: FDA-Public Use
  Company Number: US-SA-2020SA236525

PATIENT

DRUGS (1)
  1. LANTUS SOLOSTAR [Suspect]
     Active Substance: INSULIN GLARGINE
     Indication: TYPE 2 DIABETES MELLITUS
     Dosage: 14 IU, QD (EVERY EVENING)
     Route: 065
     Dates: start: 202005

REACTIONS (2)
  - Product storage error [Unknown]
  - Visual impairment [Unknown]

NARRATIVE: CASE EVENT DATE: 20200829
